FAERS Safety Report 21458424 (Version 6)
Quarter: 2022Q4

REPORT INFORMATION
  Report Type: Spontaneous
  Country: CN (occurrence: CN)
  Receive Date: 20221014
  Receipt Date: 20221207
  Transmission Date: 20230112
  Serious: Yes (Hospitalization, Other)
  Sender: FDA-Public Use
  Company Number: CN-PFIZER INC-PV202200080623

PATIENT
  Age: 12 Year
  Sex: Male

DRUGS (3)
  1. AZITHROMYCIN [Suspect]
     Active Substance: AZITHROMYCIN
     Indication: Pneumonia
     Dosage: 0.5 G, 1X/DAY
     Route: 041
     Dates: start: 20220909, end: 20220914
  2. TAN RE QING [Concomitant]
     Dosage: UNK, 1X/DAY
     Route: 041
     Dates: start: 20220910, end: 20220914
  3. CHUAN DING [Concomitant]
     Dosage: UNK, 1X/DAY
     Route: 041
     Dates: start: 20220910, end: 20220914

REACTIONS (2)
  - Erythema multiforme [Recovered/Resolved]
  - Off label use [Unknown]

NARRATIVE: CASE EVENT DATE: 20220909
